FAERS Safety Report 9079254 (Version 1)
Quarter: 2013Q1

REPORT INFORMATION
  Report Type: Report from Study
  Country: US (occurrence: US)
  Receive Date: 20130130
  Receipt Date: 20130130
  Transmission Date: 20140127
  Serious: No
  Sender: FDA-Public Use
  Company Number: US-ABBOTT-12P-163-0948876-00

PATIENT
  Age: 50 None
  Sex: Female
  Weight: 39.04 kg

DRUGS (12)
  1. HUMIRA 40 MG/0.8 ML PEN [Suspect]
     Indication: CROHN^S DISEASE
     Dates: start: 20120104
  2. HUMIRA 40 MG/0.8 ML PEN [Suspect]
  3. ESTROGEN [Suspect]
     Indication: HORMONE REPLACEMENT THERAPY
     Route: 048
  4. SEROQUEL [Concomitant]
     Indication: BIPOLAR DISORDER
     Dosage: 50MG AT BEDTIME
     Route: 048
  5. XANAX [Concomitant]
     Indication: PRODUCT USED FOR UNKNOWN INDICATION
     Dosage: 2MG AT BEDTIME
     Route: 048
  6. MULTIVITAMINS [Concomitant]
     Indication: VITAMIN SUPPLEMENTATION
  7. NATURAL SUPPLEMENTS [Concomitant]
     Indication: SUPPLEMENTATION THERAPY
  8. CALCIUM [Concomitant]
     Indication: OSTEOPOROSIS
  9. MOOD FREE VITAMINS [Concomitant]
     Indication: VITAMIN SUPPLEMENTATION
  10. VITAMIN E [Concomitant]
     Indication: VITAMIN SUPPLEMENTATION
  11. VITAMIN D [Concomitant]
     Indication: VITAMIN SUPPLEMENTATION
  12. VITAMIN C [Concomitant]
     Indication: VITAMIN SUPPLEMENTATION

REACTIONS (18)
  - Bundle branch block right [Unknown]
  - Diarrhoea [Not Recovered/Not Resolved]
  - Abdominal pain [Not Recovered/Not Resolved]
  - Weight decreased [Not Recovered/Not Resolved]
  - Crohn^s disease [Not Recovered/Not Resolved]
  - Intestinal obstruction [Unknown]
  - Dehydration [Recovered/Resolved]
  - Emergency care [Unknown]
  - Emphysema [Not Recovered/Not Resolved]
  - Bronchitis chronic [Not Recovered/Not Resolved]
  - Hypersensitivity [Not Recovered/Not Resolved]
  - Rhinorrhoea [Not Recovered/Not Resolved]
  - Memory impairment [Not Recovered/Not Resolved]
  - Dementia Alzheimer^s type [Not Recovered/Not Resolved]
  - Injection site pain [Not Recovered/Not Resolved]
  - Injection site bruising [Unknown]
  - Drug dose omission [Unknown]
  - Incorrect dose administered [Unknown]
